FAERS Safety Report 8078159-7 (Version None)
Quarter: 2012Q1

REPORT INFORMATION
  Report Type: 
  Country: None (occurrence: None)
  Receive Date: 20120127
  Receipt Date: 20101220
  Transmission Date: 20120608
  Serious: No
  Sender: FDA-Public Use
  Company Number: US-BAUSCH-2010BL007223

PATIENT
  Age: 28 Year
  Sex: Female

DRUGS (1)
  1. ZYLET [Suspect]
     Indication: CONJUNCTIVITIS BACTERIAL
     Route: 047
     Dates: start: 20101214, end: 20101214

REACTIONS (3)
  - OEDEMA PERIPHERAL [None]
  - PERIPHERAL COLDNESS [None]
  - MUSCULOSKELETAL STIFFNESS [None]
